FAERS Safety Report 12077850 (Version 1)
Quarter: 2016Q1

REPORT INFORMATION
  Report Type: Spontaneous
  Country: US (occurrence: US)
  Receive Date: 20160215
  Receipt Date: 20160215
  Transmission Date: 20160526
  Serious: Yes (Life-Threatening, Hospitalization, Other)
  Sender: FDA-Public Use
  Company Number: US-BAYER-2016-025103

PATIENT

DRUGS (2)
  1. BAYER GENUINE ASPIRIN [Suspect]
     Active Substance: ASPIRIN
     Dosage: 325 MG, QD
     Dates: start: 2003
  2. BAYER GENUINE ASPIRIN [Suspect]
     Active Substance: ASPIRIN
     Dosage: 650 MG, ONCE
     Dates: start: 2012

REACTIONS (8)
  - Loss of consciousness [None]
  - Apparent death [None]
  - Product use issue [None]
  - Myocardial infarction [None]
  - Hospitalisation [None]
  - Cerebrovascular accident [None]
  - Coronary artery bypass [None]
  - Memory impairment [None]

NARRATIVE: CASE EVENT DATE: 2003
